FAERS Safety Report 8600345-5 (Version None)
Quarter: 2012Q3

REPORT INFORMATION
  Report Type: 
  Country: None (occurrence: None)
  Receive Date: 20120817
  Receipt Date: 20120813
  Transmission Date: 20120928
  Serious: Yes (Death)
  Sender: FDA-Public Use
  Company Number: US-PFIZER INC-2012161417

PATIENT
  Age: 54 Year
  Sex: Female

DRUGS (1)
  1. SUTENT [Suspect]
     Indication: PANCREATIC NEUROENDOCRINE TUMOUR METASTATIC
     Dosage: 12.5MG AND 25MG, 1X/DAY
     Dates: start: 20120619

REACTIONS (2)
  - PANCREATIC NEUROENDOCRINE TUMOUR METASTATIC [None]
  - DISEASE PROGRESSION [None]
